FAERS Safety Report 8934673 (Version 2)
Quarter: 2012Q4

REPORT INFORMATION
  Report Type: 
  Country: US (occurrence: US)
  Receive Date: 20121129
  Receipt Date: 20121228
  Transmission Date: 20130627
  Serious: Yes (Other)
  Sender: FDA-Public Use
  Company Number: US-SHIRE-ALL1-2012-05867

PATIENT
  Age: 6 Year
  Sex: Female

DRUGS (1)
  1. INTUNIV [Suspect]
     Indication: ATTENTION DEFICIT/HYPERACTIVITY DISORDER
     Dosage: UNK UNK, 1x/day:qd
     Route: 048
     Dates: start: 2012, end: 2012

REACTIONS (2)
  - Psychotic disorder [Unknown]
  - Hallucination [Unknown]
